FAERS Safety Report 4693093-8 (Version None)
Quarter: 2005Q2

REPORT INFORMATION
  Report Type: 
  Country: None (occurrence: None)
  Receive Date: 20050617
  Receipt Date: 20041126
  Transmission Date: 20051028
  Serious: Yes (Other)
  Sender: FDA-Public Use
  Company Number: US-BRISTOL-MYERS SQUIBB COMPANY-12784500

PATIENT
  Age: 57 Year
  Sex: Male
  Weight: 99 kg

DRUGS (1)
  1. TEQUIN [Suspect]
     Indication: GLAUCOMA SURGERY
     Route: 048
     Dates: start: 20041117, end: 20041119

REACTIONS (10)
  - ANXIETY [None]
  - BLOOD PRESSURE INCREASED [None]
  - DRY MOUTH [None]
  - DYSPNOEA [None]
  - HYPERGLYCAEMIA [None]
  - HYPOGLYCAEMIA [None]
  - INSOMNIA [None]
  - NERVOUSNESS [None]
  - NOCTURIA [None]
  - PANIC ATTACK [None]
